FAERS Safety Report 4478955-9 (Version None)
Quarter: 2004Q4

REPORT INFORMATION
  Report Type: 
  Country: None (occurrence: None)
  Receive Date: 20040923
  Receipt Date: 20040806
  Transmission Date: 20050328
  Serious: No
  Sender: FDA-Public Use
  Company Number: 208274

PATIENT
  Age: 57 Year
  Sex: Female
  Weight: 43.1 kg

DRUGS (2)
  1. AVASTIN [Suspect]
     Indication: COLON CANCER METASTATIC
     Dosage: 240 MG, Q2W, INTRAVENOUS
     Route: 042
     Dates: end: 20040708
  2. CAMPTOSAR [Concomitant]

REACTIONS (1)
  - PROTEINURIA [None]
